FAERS Safety Report 19158506 (Version 1)
Quarter: 2021Q2

REPORT INFORMATION
  Report Type: Spontaneous
  Country: US (occurrence: US)
  Receive Date: 20210420
  Receipt Date: 20210420
  Transmission Date: 20210717
  Serious: Yes (Other)
  Sender: FDA-Public Use
  Company Number: US-BAYER-2021-123345

PATIENT
  Sex: Male

DRUGS (4)
  1. XELJANZ XR [Concomitant]
     Active Substance: TOFACITINIB CITRATE
  2. HUMIRA [Concomitant]
     Active Substance: ADALIMUMAB
  3. COVID?19 VACCINE NOS. [Concomitant]
     Active Substance: COVID-19 VACCINE NOS
  4. ASPIRIN (CARDIO) [Suspect]
     Active Substance: ASPIRIN

REACTIONS (1)
  - Reye^s syndrome [None]
